FAERS Safety Report 18469010 (Version 1)
Quarter: 2020Q4

REPORT INFORMATION
  Report Type: Spontaneous
  Country: IT (occurrence: IT)
  Receive Date: 20201105
  Receipt Date: 20201105
  Transmission Date: 20210114
  Serious: Yes (Other)
  Sender: FDA-Public Use
  Company Number: IT-ASTRAZENECA-2020SF44571

PATIENT
  Age: 94 Year
  Sex: Female

DRUGS (13)
  1. PANTOPRAZOLE [Concomitant]
     Active Substance: PANTOPRAZOLE
     Indication: GASTRITIS PROPHYLAXIS
     Dosage: 20.0MG UNKNOWN
     Route: 048
     Dates: start: 20181106
  2. FUROSEMIDE. [Concomitant]
     Active Substance: FUROSEMIDE
     Indication: DIURETIC THERAPY
     Dosage: 25.0MG UNKNOWN
     Route: 048
     Dates: start: 20200707
  3. BUSCOPAN [Concomitant]
     Active Substance: BUTYLSCOPOLAMINE BROMIDE
     Indication: PAIN
     Dosage: 10.0MG UNKNOWN
     Route: 048
     Dates: start: 20200420
  4. TALOFEN [Suspect]
     Active Substance: PROMAZINE HYDROCHLORIDE
     Indication: PSYCHOTIC DISORDER
     Route: 048
     Dates: start: 20190404, end: 20201012
  5. TACHIPIRINA [Concomitant]
     Active Substance: ACETAMINOPHEN
     Indication: PYREXIA
     Route: 048
  6. QUETIAPINE. [Suspect]
     Active Substance: QUETIAPINE
     Indication: SENILE DEMENTIA
     Route: 048
     Dates: start: 20190209, end: 20201012
  7. LAEVOLAC [Concomitant]
     Active Substance: LACTULOSE
     Indication: LAXATIVE SUPPORTIVE CARE
     Dosage: 2.0DF UNKNOWN
     Route: 048
     Dates: start: 20191210
  8. TRITTICO [Concomitant]
     Active Substance: TRAZODONE HYDROCHLORIDE
     Indication: DEPRESSIVE SYMPTOM
     Dosage: 50.0MG UNKNOWN
     Route: 048
     Dates: start: 20181128
  9. CARDIOASPIRIN [Concomitant]
     Active Substance: ASPIRIN
     Indication: THROMBOSIS PROPHYLAXIS
     Dosage: 100.0MG UNKNOWN
     Route: 048
     Dates: start: 20181106
  10. CLARVISAN PVA [Concomitant]
     Indication: CATARACT
     Dosage: 2.0GTT UNKNOWN
     Route: 047
     Dates: start: 20181106
  11. TALOFEN [Concomitant]
     Active Substance: PROMAZINE HYDROCHLORIDE
     Indication: PSYCHOTIC DISORDER
     Route: 048
     Dates: start: 20200720
  12. KEPPRA [Concomitant]
     Active Substance: LEVETIRACETAM
     Indication: EPILEPSY
     Dosage: 1000.0MG UNKNOWN
     Route: 048
     Dates: start: 20181106
  13. TALOFEN [Concomitant]
     Active Substance: PROMAZINE HYDROCHLORIDE
     Indication: PSYCHOTIC DISORDER
     Dosage: 1.0ML UNKNOWN
     Route: 030

REACTIONS (2)
  - Sopor [Recovering/Resolving]
  - Overdose [Recovering/Resolving]

NARRATIVE: CASE EVENT DATE: 20201011
